FAERS Safety Report 6053783-1 (Version None)
Quarter: 2009Q1

REPORT INFORMATION
  Report Type: 
  Country: None (occurrence: None)
  Receive Date: 20090127
  Receipt Date: 20081017
  Transmission Date: 20090719
  Serious: No
  Sender: FDA-Public Use
  Company Number: US-TEVA-179053USA

PATIENT
  Sex: Male

DRUGS (1)
  1. COPAXONE [Suspect]
     Indication: MULTIPLE SCLEROSIS
     Route: 058
     Dates: start: 20081006

REACTIONS (2)
  - CHILLS [None]
  - PYREXIA [None]
